FAERS Safety Report 5581970-5 (Version None)
Quarter: 2008Q1

REPORT INFORMATION
  Report Type: 
  Country: None (occurrence: None)
  Receive Date: 20080104
  Receipt Date: 20080102
  Transmission Date: 20080703
  Serious: Yes (Hospitalization)
  Sender: FDA-Public Use
  Company Number: B0501421A

PATIENT
  Age: 15 Year
  Sex: Female

DRUGS (7)
  1. AMOXICILLIN [Suspect]
     Indication: TOOTHACHE
     Dosage: 1500MG PER DAY
     Route: 048
     Dates: start: 20070819, end: 20070819
  2. ADVIL LIQUI-GELS [Suspect]
     Indication: TOOTHACHE
     Dosage: 2400MG PER DAY
     Route: 048
     Dates: start: 20070819, end: 20070819
  3. SURGAM [Suspect]
     Indication: TOOTHACHE
     Dosage: 600MG PER DAY
     Route: 048
     Dates: start: 20070819, end: 20070819
  4. DOLIPRANE [Concomitant]
     Indication: TOOTHACHE
     Dosage: 1TAB PER DAY
     Route: 048
     Dates: start: 20070819, end: 20070819
  5. VENTOLIN [Concomitant]
     Route: 065
  6. QVAR 40 [Concomitant]
     Route: 065
  7. SINGULAIR [Concomitant]
     Route: 065

REACTIONS (2)
  - ABDOMINAL PAIN UPPER [None]
  - OVERDOSE [None]
